FAERS Safety Report 7462635-1 (Version None)
Quarter: 2011Q2

REPORT INFORMATION
  Report Type: 
  Country: None (occurrence: None)
  Receive Date: 20110506
  Receipt Date: 20110428
  Transmission Date: 20111010
  Serious: Yes (Other)
  Sender: FDA-Public Use
  Company Number: PHHY2011CA34154

PATIENT
  Sex: Female

DRUGS (1)
  1. CLOZARIL [Suspect]

REACTIONS (2)
  - METASTASES TO LIVER [None]
  - LUNG NEOPLASM MALIGNANT [None]
